FAERS Safety Report 21189838 (Version 1)
Quarter: 2022Q3

REPORT INFORMATION
  Report Type: Spontaneous
  Country: US (occurrence: None)
  Receive Date: 20220808
  Receipt Date: 20220808
  Transmission Date: 20221026
  Serious: Yes (Hospitalization)
  Sender: FDA-Public Use
  Company Number: None

PATIENT
  Age: 76 Year
  Sex: Female
  Weight: 72.7 kg

DRUGS (2)
  1. DAPSONE [Suspect]
     Active Substance: DAPSONE
     Indication: Pneumocystis jirovecii pneumonia
     Dosage: FREQUENCY : DAILY;?
     Route: 048
     Dates: start: 20211004, end: 20211104
  2. DAPSONE [Suspect]
     Active Substance: DAPSONE
     Indication: Prophylaxis

REACTIONS (2)
  - Methaemoglobinaemia [None]
  - Acute respiratory failure [None]

NARRATIVE: CASE EVENT DATE: 20211104
